FAERS Safety Report 18736325 (Version 3)
Quarter: 2023Q1

REPORT INFORMATION
  Report Type: Spontaneous
  Country: US (occurrence: US)
  Receive Date: 20210113
  Receipt Date: 20230103
  Transmission Date: 20230417
  Serious: Yes (Life-Threatening, Other)
  Sender: FDA-Public Use
  Company Number: US-PFIZER INC-2021018131

PATIENT
  Age: 55 Year
  Sex: Female
  Weight: 71.21 kg

DRUGS (1)
  1. DESVENLAFAXINE SUCCINATE [Suspect]
     Active Substance: DESVENLAFAXINE SUCCINATE
     Indication: Depression
     Dosage: UNK

REACTIONS (3)
  - Suicidal behaviour [Unknown]
  - Drug ineffective [Unknown]
  - Visual impairment [Unknown]
